FAERS Safety Report 14993932 (Version 1)
Quarter: 2018Q2

REPORT INFORMATION
  Report Type: Report from Study
  Country: DE (occurrence: DE)
  Receive Date: 20180611
  Receipt Date: 20180611
  Transmission Date: 20180711
  Serious: Yes (Other)
  Sender: FDA-Public Use
  Company Number: DE-TEVA-2018-DE-904663

PATIENT
  Age: 85 Year
  Sex: Female

DRUGS (21)
  1. ANTRA [Concomitant]
     Active Substance: OMEPRAZOLE
     Indication: ULCER
     Route: 048
     Dates: start: 19950630, end: 19950630
  2. PERENTEROL [Suspect]
     Active Substance: SACCHAROMYCES CEREVISIAE
     Indication: DIARRHOEA
     Route: 048
     Dates: start: 19950630, end: 19950701
  3. LOPIRIN COR [Suspect]
     Active Substance: CAPTOPRIL
     Indication: CARDIAC DISORDER
     Route: 048
     Dates: start: 19950629
  4. ARELIX [Suspect]
     Active Substance: PIRETANIDE
     Indication: CARDIAC DISORDER
     Route: 048
     Dates: start: 19950629
  5. AMOXYPEN [Concomitant]
     Active Substance: AMOXICILLIN
     Indication: URINARY TRACT INFECTION
     Route: 048
     Dates: start: 19950630, end: 19950701
  6. CAPTOGAMMA [Concomitant]
     Indication: HYPERTENSION
     Route: 048
     Dates: end: 19950629
  7. OEDEMASE [Suspect]
     Active Substance: FUROSEMIDE
     Indication: CARDIAC FAILURE
     Route: 048
     Dates: end: 19950629
  8. LOPEDIUM [Suspect]
     Active Substance: LOPERAMIDE
     Indication: DIARRHOEA
     Route: 048
     Dates: start: 19950627, end: 19950629
  9. PARACETAMOL [Concomitant]
     Active Substance: ACETAMINOPHEN
     Indication: PAIN
     Route: 048
     Dates: start: 19950630, end: 19950630
  10. ASPIRIN. [Suspect]
     Active Substance: ASPIRIN
     Indication: CARDIAC DISORDER
     Route: 048
     Dates: end: 19950629
  11. SANTAX S (SACCHAROMYCES CEREVISIAE) [Suspect]
     Active Substance: SACCHAROMYCES CEREVISIAE
     Indication: DIARRHOEA
     Route: 048
     Dates: start: 19950626, end: 19950629
  12. DEXABENE [DEXAMETHASONE SODIUM PHOSPHATE] [Suspect]
     Active Substance: DEXAMETHASONE SODIUM PHOSPHATE
     Indication: BACK PAIN
     Route: 030
     Dates: start: 19950627, end: 19950627
  13. BACTRIM [Suspect]
     Active Substance: SULFAMETHOXAZOLE\TRIMETHOPRIM
     Indication: URINARY TRACT INFECTION
     Route: 048
     Dates: start: 19950630, end: 19950630
  14. PIROX [Suspect]
     Active Substance: PIROXICAM
     Indication: BACK PAIN
     Route: 030
     Dates: start: 19950627, end: 19950627
  15. GLUCOBAY [Concomitant]
     Active Substance: ACARBOSE
     Indication: DIABETES MELLITUS
     Route: 048
  16. ACTRAPHANE INSULIN [Concomitant]
     Indication: DIABETES MELLITUS
     Route: 058
  17. NOVODIGAL [DIGOXIN] [Concomitant]
     Active Substance: DIGOXIN
     Indication: CARDIAC DISORDER
     Route: 048
  18. CYTOBION [Concomitant]
     Indication: VITAMIN SUPPLEMENTATION
     Route: 030
  19. HEPARIN [Suspect]
     Active Substance: HEPARIN SODIUM
     Indication: THROMBOSIS PROPHYLAXIS
     Route: 058
     Dates: start: 19950629
  20. KALINOR BRAUSE (POTASSIUM CARBONATE\POTASSIUM CITRATE) [Concomitant]
     Active Substance: POTASSIUM CARBONATE\POTASSIUM CITRATE
     Indication: ELECTROLYTE SUBSTITUTION THERAPY
     Route: 048
     Dates: start: 19950629
  21. PASPERTIN [Concomitant]
     Indication: GASTRIC ULCER
     Route: 042
     Dates: start: 19950630, end: 19950630

REACTIONS (2)
  - Stevens-Johnson syndrome [Recovering/Resolving]
  - Gastrointestinal disorder [Unknown]

NARRATIVE: CASE EVENT DATE: 19950630
